FAERS Safety Report 11419565 (Version 1)
Quarter: 2015Q3

REPORT INFORMATION
  Report Type: Spontaneous
  Country: US (occurrence: None)
  Receive Date: 20150825
  Receipt Date: 20150825
  Transmission Date: 20151125
  Serious: No
  Sender: FDA-Public Use
  Company Number: None

PATIENT
  Age: 59 Year
  Sex: Male
  Weight: 112.95 kg

DRUGS (9)
  1. CABAPENTIN [Concomitant]
  2. CITALOPRAM [Concomitant]
     Active Substance: CITALOPRAM HYDROBROMIDE
  3. FINASTERIDE. [Concomitant]
     Active Substance: FINASTERIDE
  4. RYR OINTMET [Concomitant]
  5. COUMADIN [Suspect]
     Active Substance: WARFARIN SODIUM
     Indication: THROMBOSIS
     Dosage: 7 1/2 ML ?30 ?1 PILL DAILY?MOUTH
     Route: 048
     Dates: start: 20150709, end: 20150726
  6. WARFARIN [Concomitant]
     Active Substance: WARFARIN
  7. TERAZOSIN [Concomitant]
     Active Substance: TERAZOSIN\TERAZOSIN HYDROCHLORIDE
  8. HYDROCODONE [Concomitant]
     Active Substance: HYDROCODONE
  9. POLYVINYL [Concomitant]

REACTIONS (11)
  - Drug hypersensitivity [None]
  - Pain in extremity [None]
  - International normalised ratio increased [None]
  - Dizziness [None]
  - Loss of consciousness [None]
  - Product substitution issue [None]
  - Headache [None]
  - Aggression [None]
  - Mental disorder [None]
  - Abdominal pain upper [None]
  - Product quality issue [None]

NARRATIVE: CASE EVENT DATE: 20150709
